FAERS Safety Report 5661374-7 (Version None)
Quarter: 2008Q1

REPORT INFORMATION
  Report Type: 
  Country: None (occurrence: None)
  Receive Date: 20080306
  Receipt Date: 20080219
  Transmission Date: 20080703
  Serious: Yes (Other)
  Sender: FDA-Public Use
  Company Number: 2007EU002045

PATIENT
  Age: 61 Year
  Sex: Male

DRUGS (8)
  1. FK506(TACROLIMUS) FORMULATION UNKNOWN, 0.5MG [Suspect]
     Indication: RENAL TRANSPLANT
     Dosage: 0.5 MG, CYCLIC
  2. FOSAMPRENAVIR(FOSAMPRENAVIR) [Suspect]
     Indication: HIV INFECTION
     Dosage: /D
  3. RITONAVIR(RITONAVIR) [Suspect]
     Indication: HIV INFECTION
     Dosage: /D
  4. SIMULECT [Concomitant]
  5. CORTICOSTEROIDS [Concomitant]
  6. MYCOPHENOLATE MOFETIL [Concomitant]
  7. LAMIVUDINE [Concomitant]
  8. ZIDOVUDINE [Concomitant]

REACTIONS (4)
  - DRUG INTERACTION [None]
  - DRUG LEVEL INCREASED [None]
  - KAPOSI'S SARCOMA [None]
  - RENAL TRANSPLANT [None]
